FAERS Safety Report 6530312-7 (Version None)
Quarter: 2010Q1

REPORT INFORMATION
  Report Type: 
  Country: None (occurrence: None)
  Receive Date: 20100107
  Receipt Date: 20091228
  Transmission Date: 20100710
  Serious: Yes (Other)
  Sender: FDA-Public Use
  Company Number: US-PFIZER INC-2009315882

PATIENT
  Sex: Male
  Weight: 104.32 kg

DRUGS (4)
  1. DEPO-MEDROL [Suspect]
     Indication: MUSCULOSKELETAL PAIN
     Dosage: FREQUENCY: AS NEEDED,
     Dates: start: 20091012, end: 20091122
  2. LIPITOR [Suspect]
     Dosage: UNK
     Route: 048
     Dates: end: 20091101
  3. HYZAAR [Concomitant]
     Dates: start: 20030101
  4. ARTHROTEC [Concomitant]

REACTIONS (5)
  - ANXIETY [None]
  - CHEST PAIN [None]
  - DECREASED APPETITE [None]
  - DIZZINESS [None]
  - FEELING HOT [None]
